FAERS Safety Report 7261494-X (Version None)
Quarter: 2011Q1

REPORT INFORMATION
  Report Type: 
  Country: None (occurrence: None)
  Receive Date: 20110130
  Receipt Date: 20100927
  Transmission Date: 20110831
  Serious: No
  Sender: FDA-Public Use
  Company Number: US-ABBOTT-10P-163-0675043-00

PATIENT
  Sex: Female
  Weight: 106.24 kg

DRUGS (6)
  1. HUMIRA [Suspect]
     Route: 058
  2. MOBIC [Concomitant]
     Indication: RHEUMATOID ARTHRITIS
  3. HUMIRA [Suspect]
     Dosage: 6 MONTHS AFTER STARTING HUMIRA THERAPY THE DOSE WAS INCREASED TO WEEKLY.
     Route: 058
  4. HUMIRA [Suspect]
     Indication: RHEUMATOID ARTHRITIS
     Route: 058
  5. LYRICA [Concomitant]
     Indication: FIBROMYALGIA
  6. METHOTREXATE [Concomitant]
     Indication: RHEUMATOID ARTHRITIS

REACTIONS (7)
  - ARTHRITIS [None]
  - DEPRESSION [None]
  - BRONCHITIS [None]
  - DRUG INEFFECTIVE [None]
  - SINUSITIS [None]
  - ARTHRALGIA [None]
  - ABASIA [None]
